APPROVED DRUG PRODUCT: MYFEMBREE
Active Ingredient: ESTRADIOL; NORETHINDRONE ACETATE; RELUGOLIX
Strength: 1MG;0.5MG;40MG
Dosage Form/Route: TABLET;ORAL
Application: N214846 | Product #001
Applicant: SUMITOMO PHARMA AMERICA INC
Approved: May 26, 2021 | RLD: Yes | RS: Yes | Type: RX

PATENTS:
Patent 11793812 | Expires: May 3, 2038
Patent 11033551 | Expires: Sep 29, 2037
Patent 11957684 | Expires: Sep 29, 2037
Patent 12325714 | Expires: Sep 27, 2033
Patent 11795178 | Expires: Sep 27, 2033
Patent 7300935 | Expires: Jan 28, 2029
Patent 8058280 | Expires: Jan 28, 2026

EXCLUSIVITY:
Code: M-289 | Date: Jan 27, 2026